FAERS Safety Report 26215483 (Version 1)
Quarter: 2025Q4

REPORT INFORMATION
  Report Type: Spontaneous
  Country: EU (occurrence: EU)
  Receive Date: 20251231
  Receipt Date: 20251231
  Transmission Date: 20260118
  Serious: Yes (Other)
  Sender: GLAXOSMITHKLINE
  Company Number: None

PATIENT
  Age: 32 Year
  Sex: Male
  Weight: 104 kg

DRUGS (9)
  1. LAMOTRIGINE [Interacting]
     Active Substance: LAMOTRIGINE
     Indication: Bipolar disorder
     Dosage: 75 MG, QD
  2. GABAPENTIN [Interacting]
     Active Substance: GABAPENTIN
     Indication: Diabetic neuropathy
     Dosage: 600 MG, QD
  3. ZUCLOPENTHIXOL [Interacting]
     Active Substance: ZUCLOPENTHIXOL
     Indication: Bipolar disorder
     Dosage: 100 MG, QD
  4. DIAZEPAM [Interacting]
     Active Substance: DIAZEPAM
     Indication: Bipolar disorder
     Dosage: 20 MG, QD
  5. QUETIAPINE [Interacting]
     Active Substance: QUETIAPINE
     Indication: Bipolar disorder
     Dosage: 400 MG
  6. TROPATEPINE HYDROCHLORIDE [Interacting]
     Active Substance: TROPATEPINE HYDROCHLORIDE
     Indication: Wrong patient
     Dosage: 1 DF, QD
  7. OXAZEPAM [Interacting]
     Active Substance: OXAZEPAM
     Indication: Wrong patient
     Dosage: 3 DF, QD
  8. BRINTELLIX [Interacting]
     Active Substance: VORTIOXETINE HYDROBROMIDE
     Indication: Wrong patient
     Dosage: 1 DF, QD
  9. LOXAPINE SUCCINATE [Interacting]
     Active Substance: LOXAPINE SUCCINATE
     Indication: Wrong patient
     Dosage: 100 MG, QD

REACTIONS (3)
  - Somnolence [Recovered/Resolved]
  - Tremor [Recovered/Resolved]
  - Drug interaction [Recovered/Resolved]

NARRATIVE: CASE EVENT DATE: 20251024
